FAERS Safety Report 10301807 (Version 1)
Quarter: 2014Q3

REPORT INFORMATION
  Report Type: Spontaneous
  Country: BE (occurrence: None)
  Receive Date: 20140709
  Receipt Date: 20140709
  Transmission Date: 20150326
  Serious: Yes (Life-Threatening)
  Sender: FDA-Public Use
  Company Number: 2014HINLIT0592

PATIENT
  Age: 65 Year
  Sex: Male

DRUGS (5)
  1. MGSO4 (MGSO4) [Concomitant]
  2. TACROLIMUS (TACROLIMUS) [Suspect]
     Active Substance: TACROLIMUS
     Indication: PRODUCT USED FOR UNKNOWN INDICATION
  3. ESCITALOPRAM [Suspect]
     Active Substance: ESCITALOPRAM OXALATE
     Indication: DEPRESSION
  4. OMEPRAZOLE (OMEPRAZOLE) [Suspect]
     Active Substance: OMEPRAZOLE
     Indication: PRODUCT USED FOR UNKNOWN INDICATION
  5. SOTALOL (SOTALOL) [Suspect]
     Active Substance: SOTALOL
     Indication: ATRIAL FIBRILLATION

REACTIONS (8)
  - Hypokalaemia [None]
  - Pallor [None]
  - Vomiting [None]
  - Electrocardiogram QT prolonged [None]
  - Drug interaction [None]
  - Loss of consciousness [None]
  - Torsade de pointes [None]
  - Apnoea [None]
